FAERS Safety Report 6362300-8 (Version None)
Quarter: 2009Q3

REPORT INFORMATION
  Report Type: 
  Country: None (occurrence: None)
  Receive Date: 20090918
  Receipt Date: 20090821
  Transmission Date: 20100115
  Serious: No
  Sender: FDA-Public Use
  Company Number: US-ABBOTT-09P-163-0593023-00

PATIENT
  Sex: Female
  Weight: 55.842 kg

DRUGS (6)
  1. HUMIRA [Suspect]
     Indication: RHEUMATOID ARTHRITIS
     Route: 058
     Dates: start: 20090625
  2. GABAPENTIN [Concomitant]
     Indication: FIBROMYALGIA
     Route: 048
  3. PREDNISONE [Concomitant]
     Indication: FIBROMYALGIA
     Route: 048
  4. PREDNISONE [Concomitant]
     Indication: RHEUMATOID ARTHRITIS
  5. CARISOPRODOL [Concomitant]
     Indication: MUSCLE SPASMS
     Route: 048
  6. NAPROSYN [Concomitant]
     Indication: PAIN
     Route: 048

REACTIONS (7)
  - CHEST DISCOMFORT [None]
  - COUGH [None]
  - DIZZINESS [None]
  - FATIGUE [None]
  - RESPIRATORY TRACT CONGESTION [None]
  - THROAT IRRITATION [None]
  - TOOTH ABSCESS [None]
